FAERS Safety Report 9899324 (Version 2)
Quarter: 2014Q1

REPORT INFORMATION
  Report Type: Report from Study
  Country: DE (occurrence: DE)
  Receive Date: 20140214
  Receipt Date: 20140321
  Transmission Date: 20141002
  Serious: Yes (Other)
  Sender: FDA-Public Use
  Company Number: DE-ABBVIE-14P-062-1201282-00

PATIENT
  Sex: Female
  Weight: 120 kg

DRUGS (2)
  1. HUMIRA [Suspect]
     Indication: CROHN^S DISEASE
     Route: 058
     Dates: start: 20090901, end: 20140109
  2. HUMIRA [Suspect]
     Route: 058
     Dates: start: 20140109

REACTIONS (4)
  - Type 2 diabetes mellitus [Recovering/Resolving]
  - Crohn^s disease [Recovering/Resolving]
  - Rheumatoid arthritis [Unknown]
  - Asthma [Unknown]
